FAERS Safety Report 10428525 (Version 1)
Quarter: 2014Q3

REPORT INFORMATION
  Report Type: Spontaneous
  Country: VE (occurrence: VE)
  Receive Date: 20140903
  Receipt Date: 20140903
  Transmission Date: 20150326
  Serious: Yes (Hospitalization)
  Sender: FDA-Public Use
  Company Number: PHHY2014VE111070

PATIENT
  Age: 63 Year
  Sex: Female

DRUGS (7)
  1. FORADIL [Suspect]
     Active Substance: FORMOTEROL FUMARATE
     Dosage: 1 DF, Q12H
     Route: 055
  2. FORADIL [Suspect]
     Active Substance: FORMOTEROL FUMARATE
     Dosage: 1 DF, QD
     Route: 055
     Dates: end: 20140830
  3. MIFLONIDE [Suspect]
     Active Substance: BUDESONIDE
     Indication: BRONCHIAL DISORDER
     Dosage: 1 DF, Q12H
     Route: 055
     Dates: end: 201211
  4. FORADIL [Suspect]
     Active Substance: FORMOTEROL FUMARATE
     Indication: BRONCHIAL DISORDER
     Dosage: 1 DF, Q12H
     Route: 055
     Dates: end: 201211
  5. MIFLONIDE [Suspect]
     Active Substance: BUDESONIDE
     Dosage: 1 DF, Q12H
     Route: 055
     Dates: end: 201211
  6. MIFLONIDE [Suspect]
     Active Substance: BUDESONIDE
     Dosage: 1 DF, QD
     Route: 055
     Dates: end: 20140830
  7. EUTHYROX [Concomitant]
     Active Substance: LEVOTHYROXINE SODIUM
     Indication: HYPOTHYROIDISM
     Dosage: UNK UKN, UNK
     Dates: end: 20140901

REACTIONS (4)
  - Influenza [Not Recovered/Not Resolved]
  - General physical health deterioration [Not Recovered/Not Resolved]
  - Pneumonia [Not Recovered/Not Resolved]
  - Fatigue [Not Recovered/Not Resolved]

NARRATIVE: CASE EVENT DATE: 201211
